FAERS Safety Report 7908308-X (Version None)
Quarter: 2011Q4

REPORT INFORMATION
  Report Type: 
  Country: None (occurrence: None)
  Receive Date: 20111111
  Receipt Date: 20111103
  Transmission Date: 20120403
  Serious: No
  Sender: FDA-Public Use
  Company Number: US-BIOGENIDEC-2011BI042068

PATIENT
  Sex: Female

DRUGS (2)
  1. AVONEX [Suspect]
     Indication: MULTIPLE SCLEROSIS
     Route: 030
     Dates: start: 20040823, end: 20060514
  2. AVONEX [Suspect]
     Route: 030
     Dates: start: 20010301, end: 20010927

REACTIONS (2)
  - COGNITIVE DISORDER [None]
  - GAIT DISTURBANCE [None]
